FAERS Safety Report 12072112 (Version 1)
Quarter: 2016Q1

REPORT INFORMATION
  Report Type: Spontaneous
  Country: US (occurrence: None)
  Receive Date: 20160211
  Receipt Date: 20160211
  Transmission Date: 20160526
  Serious: Yes (Disabling)
  Sender: FDA-Public Use
  Company Number: None

PATIENT
  Age: 72 Year
  Sex: Female
  Weight: 63.96 kg

DRUGS (3)
  1. ATOVAQUONE-PROGUANIL [Suspect]
     Active Substance: ATOVAQUONE\PROGUANIL HYDROCHLORIDE
     Indication: MALARIA PROPHYLAXIS
     Route: 048
     Dates: start: 20160130, end: 20160202
  2. LEXAPRO [Concomitant]
     Active Substance: ESCITALOPRAM OXALATE
  3. TRAZODONE [Concomitant]
     Active Substance: TRAZODONE HYDROCHLORIDE

REACTIONS (8)
  - Fall [None]
  - Fatigue [None]
  - Arthropod bite [None]
  - Diarrhoea [None]
  - Headache [None]
  - Syncope [None]
  - Nausea [None]
  - Head injury [None]

NARRATIVE: CASE EVENT DATE: 20160202
